FAERS Safety Report 8163358-6 (Version None)
Quarter: 2012Q1

REPORT INFORMATION
  Report Type: 
  Country: None (occurrence: None)
  Receive Date: 20120221
  Receipt Date: 20120217
  Transmission Date: 20120608
  Serious: Yes (Death, Life-Threatening, Hospitalization)
  Sender: FDA-Public Use
  Company Number: 2009SP037251

PATIENT
  Age: 79 Year
  Sex: Female
  Weight: 63 kg

DRUGS (13)
  1. LEVOTHYROXINE SODIUM [Concomitant]
  2. ZONISAMIDE [Concomitant]
  3. RAMELTEON [Concomitant]
  4. TAGAMET [Concomitant]
  5. TEMODAL [Suspect]
     Indication: BRAIN NEOPLASM
     Dosage: 150 MG/M2;QD;PO 200 MG/M2;QD;PO
     Route: 048
     Dates: start: 20070206, end: 20070210
  6. TEMODAL [Suspect]
     Indication: BRAIN NEOPLASM
     Dosage: 150 MG/M2;QD;PO 200 MG/M2;QD;PO
     Route: 048
     Dates: start: 20070508, end: 20070512
  7. TEMODAL [Suspect]
     Indication: BRAIN NEOPLASM
     Dosage: 150 MG/M2;QD;PO 200 MG/M2;QD;PO
     Route: 048
     Dates: start: 20070313, end: 20070317
  8. TEMODAL [Suspect]
     Indication: BRAIN NEOPLASM
     Dosage: 150 MG/M2;QD;PO 200 MG/M2;QD;PO
     Route: 048
     Dates: start: 20070925, end: 20071226
  9. TEMODAL [Suspect]
     Indication: BRAIN NEOPLASM
     Dosage: 150 MG/M2;QD;PO 200 MG/M2;QD;PO
     Route: 048
     Dates: start: 20070109, end: 20070113
  10. TEMODAL [Suspect]
     Indication: BRAIN NEOPLASM
     Dosage: 150 MG/M2;QD;PO 200 MG/M2;QD;PO
     Route: 048
     Dates: start: 20070410, end: 20070414
  11. TEMODAL [Suspect]
     Indication: BRAIN NEOPLASM
     Dosage: 150 MG/M2;QD;PO 200 MG/M2;QD;PO
     Route: 048
     Dates: start: 20080205, end: 20080209
  12. TEMODAL [Suspect]
     Indication: BRAIN NEOPLASM
     Dosage: 150 MG/M2;QD;PO 200 MG/M2;QD;PO
     Route: 048
     Dates: start: 20070717, end: 20070721
  13. PREDNISOLONE [Concomitant]

REACTIONS (4)
  - FEMORAL NECK FRACTURE [None]
  - BRAIN NEOPLASM [None]
  - NEOPLASM PROGRESSION [None]
  - POSTOPERATIVE THROMBOSIS [None]
